FAERS Safety Report 5969958-3 (Version None)
Quarter: 2008Q4

REPORT INFORMATION
  Report Type: 
  Country: None (occurrence: None)
  Receive Date: 20081126
  Receipt Date: 20081006
  Transmission Date: 20090506
  Serious: No
  Sender: FDA-Public Use
  Company Number: US-ABBOTT-08P-163-0480138-00

PATIENT
  Sex: Female
  Weight: 81.72 kg

DRUGS (9)
  1. SIMCOR [Suspect]
     Indication: HYPERCHOLESTEROLAEMIA
     Dosage: 500MG/20MG DAILY
     Route: 048
     Dates: start: 20080928, end: 20080930
  2. OLMESARTAN MEDOXOMIL [Concomitant]
     Indication: DRUG USE FOR UNKNOWN INDICATION
  3. CALCIUM-SANDOZ [Concomitant]
     Indication: DRUG USE FOR UNKNOWN INDICATION
  4. VIGRAN [Concomitant]
     Indication: DRUG USE FOR UNKNOWN INDICATION
  5. FISH OIL [Concomitant]
     Indication: DRUG USE FOR UNKNOWN INDICATION
  6. ALLERGY TABLETS [Concomitant]
     Indication: DRUG USE FOR UNKNOWN INDICATION
  7. BENADRYL [Concomitant]
     Indication: HOUSE DUST ALLERGY
     Route: 048
     Dates: start: 20060101
  8. BENADRYL [Concomitant]
     Indication: MYCOTIC ALLERGY
  9. BENADRYL [Concomitant]
     Indication: HYPERSENSITIVITY

REACTIONS (5)
  - FLUSHING [None]
  - PARAESTHESIA [None]
  - PRURITUS [None]
  - SWELLING [None]
  - URTICARIA [None]
